FAERS Safety Report 5511074-9 (Version None)
Quarter: 2007Q4

REPORT INFORMATION
  Report Type: 
  Country: None (occurrence: None)
  Receive Date: 20071109
  Receipt Date: 20071031
  Transmission Date: 20080405
  Serious: Yes (Other)
  Sender: FDA-Public Use
  Company Number: PHBS2007ES17428

PATIENT
  Age: 75 Year
  Sex: Male

DRUGS (1)
  1. GLEEVEC [Suspect]
     Indication: CHRONIC MYELOID LEUKAEMIA
     Route: 065
     Dates: start: 20030101

REACTIONS (3)
  - COLON CANCER [None]
  - COLOSTOMY [None]
  - ILEOSTOMY [None]
